FAERS Safety Report 20810211 (Version 2)
Quarter: 2022Q2

REPORT INFORMATION
  Report Type: Spontaneous
  Country: CA (occurrence: CA)
  Receive Date: 20220510
  Receipt Date: 20220512
  Transmission Date: 20220720
  Serious: Yes (Death)
  Sender: FDA-Public Use
  Company Number: CA-PFIZER INC-202200516344

PATIENT
  Age: 66 Year
  Sex: Male

DRUGS (2)
  1. ZIRABEV [Suspect]
     Active Substance: BEVACIZUMAB-BVZR
     Indication: Non-small cell lung cancer stage IV
     Dosage: 1200 MG, EVERY 3 WEEKS
     Route: 042
     Dates: start: 20220414
  2. DOCETAXEL [Concomitant]
     Active Substance: DOCETAXEL
     Dosage: UNK

REACTIONS (14)
  - Death [Fatal]
  - Hypotension [Recovered/Resolved]
  - White blood cell count increased [Unknown]
  - Red cell distribution width abnormal [Unknown]
  - Neutrophil count increased [Unknown]
  - Mean platelet volume abnormal [Unknown]
  - Immature granulocyte count increased [Unknown]
  - Red blood cell count decreased [Unknown]
  - Platelet count decreased [Unknown]
  - Lymphocyte count decreased [Unknown]
  - Haemoglobin decreased [Unknown]
  - Haematocrit decreased [Unknown]
  - Off label use [Unknown]
  - Product use issue [Unknown]

NARRATIVE: CASE EVENT DATE: 20220414
